FAERS Safety Report 7228911-2 (Version None)
Quarter: 2011Q1

REPORT INFORMATION
  Report Type: 
  Country: None (occurrence: None)
  Receive Date: 20110117
  Receipt Date: 20110110
  Transmission Date: 20110831
  Serious: Yes (Other)
  Sender: FDA-Public Use
  Company Number: US-ASTRAZENECA-2009UW11001

PATIENT
  Age: 11499 Day
  Sex: Male

DRUGS (15)
  1. TRICOR [Concomitant]
     Dates: start: 20070601
  2. HYZAAR [Concomitant]
     Dates: start: 20030805
  3. SEROQUEL [Suspect]
     Route: 048
     Dates: start: 20020417
  4. ULTRAM [Concomitant]
     Dates: start: 20070601
  5. HUMULIN N [Concomitant]
     Dates: start: 20070601
  6. DIAZEPAM [Concomitant]
     Dates: start: 20030805
  7. EFFEXOR XR [Concomitant]
     Dosage: 75 MG TID, ONE CAPSULE PO QAM AND TWO CAPSULE HS
     Route: 048
     Dates: start: 20020304
  8. SEROQUEL [Suspect]
     Dosage: 25 MG TO 75 MG
     Route: 048
     Dates: start: 20011210
  9. ACTOS [Concomitant]
     Dates: start: 20070601
  10. PAXIL [Concomitant]
     Dates: start: 20070601
  11. METFORMIN HCL [Concomitant]
     Dates: start: 20070601
  12. SEROQUEL [Suspect]
     Indication: PSYCHOTIC DISORDER
     Route: 048
     Dates: start: 20010101
  13. DEPAKOTE [Concomitant]
     Dates: start: 20030805
  14. LANTUS [Concomitant]
     Dates: start: 20070601
  15. HUMULIN R [Concomitant]
     Dates: start: 20070601

REACTIONS (5)
  - TYPE 2 DIABETES MELLITUS [None]
  - HYPERGLYCAEMIA [None]
  - NEUROPATHY PERIPHERAL [None]
  - DIABETIC KETOACIDOSIS [None]
  - AMNESIA [None]
